FAERS Safety Report 4457932-8 (Version None)
Quarter: 2004Q3

REPORT INFORMATION
  Report Type: 
  Country: None (occurrence: None)
  Receive Date: 20040921
  Receipt Date: 20040906
  Transmission Date: 20050211
  Serious: Yes (Death, Hospitalization, Other)
  Sender: FDA-Public Use
  Company Number: A-CH2004-04205

PATIENT
  Age: 27 Year
  Sex: Female
  Weight: 85 kg

DRUGS (10)
  1. TRACLEER [Suspect]
     Indication: PULMONARY HYPERTENSION
     Dosage: SEE IMAGE
     Route: 048
     Dates: start: 20020515, end: 20020614
  2. TRACLEER [Suspect]
     Indication: PULMONARY HYPERTENSION
     Dosage: SEE IMAGE
     Route: 048
     Dates: start: 20040615, end: 20040801
  3. FUROSEMIDE [Concomitant]
  4. ALDACTONE [Concomitant]
  5. FLOLAN [Concomitant]
  6. DIGOXIN [Concomitant]
  7. FRUMIL (AMILORIDE HYDROCHLORIDE) [Concomitant]
  8. ACENOCOUMAROL (ACENOCOUMAROL) [Concomitant]
  9. MYCOPHENOLATE MOFETIL (MYCOPHENOLATE MOFETIL) [Concomitant]
  10. INSULIN [Concomitant]

REACTIONS (2)
  - LUNG TRANSPLANT [None]
  - PULMONARY HYPERTENSION [None]
